FAERS Safety Report 14735571 (Version 1)
Quarter: 2018Q2

REPORT INFORMATION
  Report Type: Report from Study
  Country: CA (occurrence: CA)
  Receive Date: 20180409
  Receipt Date: 20180409
  Transmission Date: 20180711
  Serious: Yes (Other)
  Sender: FDA-Public Use
  Company Number: CA-JNJFOC-20180315089

PATIENT
  Sex: Male
  Weight: 85 kg

DRUGS (1)
  1. STELARA [Suspect]
     Active Substance: USTEKINUMAB
     Indication: PSORIASIS
     Dosage: 0, 4, 16 WEEKS THEN EVERY 12 WEEKS
     Route: 058

REACTIONS (1)
  - Pharyngitis streptococcal [Unknown]
